FAERS Safety Report 11070689 (Version 7)
Quarter: 2016Q3

REPORT INFORMATION
  Report Type: Report from Study
  Country: US (occurrence: US)
  Receive Date: 20150427
  Receipt Date: 20160815
  Transmission Date: 20161109
  Serious: Yes (Hospitalization)
  Sender: FDA-Public Use
  Company Number: US-ACTELION-A-US2014-110027

PATIENT
  Age: 51 Year
  Sex: Male

DRUGS (10)
  1. CORTISONE [Concomitant]
     Active Substance: CORTISONE\HYDROCORTISONE
  2. COUMADIN [Concomitant]
     Active Substance: WARFARIN SODIUM
  3. XARELTO [Concomitant]
     Active Substance: RIVAROXABAN
  4. VELETRI [Suspect]
     Active Substance: EPOPROSTENOL
     Dosage: UNK
     Route: 042
  5. RIOCIGUAT [Concomitant]
     Active Substance: RIOCIGUAT
  6. VELETRI [Suspect]
     Active Substance: EPOPROSTENOL
     Indication: PULMONARY ARTERIAL HYPERTENSION
     Dosage: 50 NG/KG, PER MIN
     Route: 042
     Dates: start: 20141024
  7. ADCIRCA [Concomitant]
     Active Substance: TADALAFIL
  8. REVATIO [Concomitant]
     Active Substance: SILDENAFIL CITRATE
  9. OPSUMIT [Suspect]
     Active Substance: MACITENTAN
     Indication: PULMONARY ARTERIAL HYPERTENSION
     Dosage: 10 MG, QD
     Route: 048
     Dates: start: 20140220
  10. REMODULIN [Concomitant]
     Active Substance: TREPROSTINIL

REACTIONS (6)
  - Knee arthroplasty [Unknown]
  - Arthralgia [Unknown]
  - Dizziness [Unknown]
  - Back pain [Unknown]
  - Pain in extremity [Unknown]
  - Osteoarthritis [Unknown]
